FAERS Safety Report 5447716-6 (Version None)
Quarter: 2007Q3

REPORT INFORMATION
  Report Type: 
  Country: None (occurrence: None)
  Receive Date: 20070910
  Receipt Date: 20070905
  Transmission Date: 20080115
  Serious: Yes (Hospitalization, Other)
  Sender: FDA-Public Use
  Company Number: GB-BRISTOL-MYERS SQUIBB COMPANY-13893086

PATIENT
  Age: 56 Year
  Sex: Female
  Weight: 70 kg

DRUGS (4)
  1. ABILIFY [Suspect]
     Indication: SCHIZOPHRENIA
     Route: 048
     Dates: start: 20050803
  2. ESCITALOPRAM OXALATE [Suspect]
     Indication: DEPRESSION
     Route: 048
     Dates: end: 20050901
  3. ESCITALOPRAM OXALATE [Suspect]
     Indication: SCHIZOPHRENIA
     Route: 048
     Dates: end: 20050901
  4. CITALOPRAM HYDROBROMIDE [Suspect]
     Route: 048
     Dates: end: 20050901

REACTIONS (2)
  - CARCINOID TUMOUR [None]
  - HOT FLUSH [None]
